FAERS Safety Report 11909542 (Version 1)
Quarter: 2016Q1

REPORT INFORMATION
  Report Type: Spontaneous
  Country: US (occurrence: US)
  Receive Date: 20160112
  Receipt Date: 20160112
  Transmission Date: 20160526
  Serious: Yes (Other)
  Sender: FDA-Public Use
  Company Number: US-ASTRAZENECA-2016SE00489

PATIENT
  Age: 84 Year
  Sex: Female

DRUGS (7)
  1. ADVAIR HFA [Suspect]
     Active Substance: FLUTICASONE PROPIONATE\SALMETEROL XINAFOATE
     Indication: ANAPHYLACTIC REACTION
     Dosage: 500/50 MCG
     Route: 065
     Dates: start: 2009
  2. SYMBICORT [Suspect]
     Active Substance: BUDESONIDE\FORMOTEROL FUMARATE DIHYDRATE
     Route: 055
  3. SEREVENT DISKUS [Suspect]
     Active Substance: SALMETEROL XINAFOATE
     Indication: ANAPHYLACTIC REACTION
     Route: 065
     Dates: start: 1975
  4. SEREVENT DISKUS [Suspect]
     Active Substance: SALMETEROL XINAFOATE
     Indication: ADVERSE DRUG REACTION
     Route: 065
     Dates: start: 1975
  5. ADVAIR HFA [Suspect]
     Active Substance: FLUTICASONE PROPIONATE\SALMETEROL XINAFOATE
     Indication: ADVERSE DRUG REACTION
     Dosage: 500/50 MCG
     Route: 065
     Dates: start: 2009
  6. FLOVENT [Suspect]
     Active Substance: FLUTICASONE PROPIONATE
     Route: 065
     Dates: start: 1975
  7. NASONEX [Suspect]
     Active Substance: MOMETASONE FUROATE
     Route: 065

REACTIONS (2)
  - Macular degeneration [Unknown]
  - Lacrimation increased [Unknown]

NARRATIVE: CASE EVENT DATE: 2012
